FAERS Safety Report 10136369 (Version 1)
Quarter: 2014Q2

REPORT INFORMATION
  Report Type: Spontaneous
  Country: US (occurrence: US)
  Receive Date: 20140429
  Receipt Date: 20140429
  Transmission Date: 20141212
  Serious: Yes (Other)
  Sender: FDA-Public Use
  Company Number: US-JNJFOC-20140413544

PATIENT
  Sex: Male

DRUGS (2)
  1. IMODIUM [Suspect]
     Route: 048
  2. IMODIUM [Suspect]
     Indication: EUPHORIC MOOD
     Dosage: 48 CAPLETS
     Route: 048
     Dates: start: 2014

REACTIONS (3)
  - Intentional product misuse [Unknown]
  - Electrocardiogram QT prolonged [Unknown]
  - Intentional overdose [Unknown]
